FAERS Safety Report 21732642 (Version 11)
Quarter: 2025Q2

REPORT INFORMATION
  Report Type: Report from Study
  Country: CO (occurrence: CO)
  Receive Date: 20221215
  Receipt Date: 20250509
  Transmission Date: 20250716
  Serious: Yes (Hospitalization, Other)
  Sender: TAKEDA
  Company Number: CO-TAKEDA-2021TUS038815

PATIENT
  Age: 39 Year
  Sex: Male
  Weight: 84 kg

DRUGS (3)
  1. ICATIBANT [Suspect]
     Active Substance: ICATIBANT ACETATE
     Indication: Hereditary angioedema
  2. ICATIBANT [Suspect]
     Active Substance: ICATIBANT ACETATE
  3. ICATIBANT [Suspect]
     Active Substance: ICATIBANT ACETATE

REACTIONS (18)
  - Craniofacial fracture [Not Recovered/Not Resolved]
  - Rib fracture [Not Recovered/Not Resolved]
  - Fall [Recovering/Resolving]
  - Limb injury [Recovering/Resolving]
  - Arthropod sting [Recovered/Resolved]
  - Discomfort [Recovered/Resolved]
  - Injury [Recovered/Resolved]
  - Accident [Unknown]
  - Scar [Unknown]
  - Road traffic accident [Recovering/Resolving]
  - Thermal burn [Recovering/Resolving]
  - Weight increased [Unknown]
  - Chills [Recovered/Resolved]
  - Malaise [Recovered/Resolved]
  - Cough [Recovered/Resolved]
  - Dyspnoea [Recovered/Resolved]
  - Influenza [Recovered/Resolved]
  - Pain [Recovered/Resolved]

NARRATIVE: CASE EVENT DATE: 20210601
